FAERS Safety Report 14203076 (Version 1)
Quarter: 2017Q4

REPORT INFORMATION
  Report Type: Spontaneous
  Country: US (occurrence: US)
  Receive Date: 20171120
  Receipt Date: 20171120
  Transmission Date: 20180321
  Serious: No
  Sender: FDA-Public Use
  Company Number: US-AUROBINDO-AUR-APU-2017-29464

PATIENT
  Age: 47 Year
  Sex: Male
  Weight: 99.79 kg

DRUGS (9)
  1. ALEVE [Concomitant]
     Active Substance: NAPROXEN SODIUM
     Indication: CARPAL TUNNEL SYNDROME
     Dosage: UNK, DAILY
     Route: 065
  2. PANTOPRAZOLE SODIUM. [Suspect]
     Active Substance: PANTOPRAZOLE SODIUM
     Indication: HAEMATEMESIS
     Dosage: 40MG TABLET, ONE TABLET TWICE A DAY FOR 4 DAYS, THEN ONCE A DAY
     Route: 048
     Dates: start: 20160919
  3. CLONIDINE. [Concomitant]
     Active Substance: CLONIDINE
     Indication: BLOOD PRESSURE SYSTOLIC
  4. VITAMIN B12 [Concomitant]
     Active Substance: CYANOCOBALAMIN
     Indication: PRODUCT USED FOR UNKNOWN INDICATION
  5. EXCEDRIN [Concomitant]
     Active Substance: ACETAMINOPHEN\ASPIRIN\CAFFEINE
     Indication: HEADACHE
  6. IBUPROFEN. [Concomitant]
     Active Substance: IBUPROFEN
     Indication: CARPAL TUNNEL SYNDROME
     Dosage: DAILY
     Route: 065
  7. NORCO [Concomitant]
     Active Substance: ACETAMINOPHEN\HYDROCODONE BITARTRATE
     Indication: CARPAL TUNNEL SYNDROME
  8. CARAFATE [Concomitant]
     Active Substance: SUCRALFATE
     Indication: HAEMATEMESIS
     Dosage: 1 G, FOUR TIMES/DAY
     Route: 065
     Dates: start: 20160919
  9. LISINOPRIL. [Concomitant]
     Active Substance: LISINOPRIL
     Indication: HYPERTENSION

REACTIONS (1)
  - Drug screen positive [Unknown]

NARRATIVE: CASE EVENT DATE: 20161207
